FAERS Safety Report 7400228-2 (Version None)
Quarter: 2011Q2

REPORT INFORMATION
  Report Type: 
  Country: None (occurrence: None)
  Receive Date: 20110405
  Receipt Date: 20110405
  Transmission Date: 20111010
  Serious: Yes (Other)
  Sender: FDA-Public Use
  Company Number: None

PATIENT
  Age: 65 Year
  Sex: Female
  Weight: 63.5036 kg

DRUGS (1)
  1. LEVAQUIN [Suspect]
     Dosage: ONE PER DAY PO
     Route: 048

REACTIONS (6)
  - MUSCULOSKELETAL PAIN [None]
  - PARAESTHESIA [None]
  - DYSPHAGIA [None]
  - BURNING SENSATION [None]
  - FEELING ABNORMAL [None]
  - OEDEMA PERIPHERAL [None]
